FAERS Safety Report 18621694 (Version 1)
Quarter: 2020Q4

REPORT INFORMATION
  Report Type: Report from Study
  Country: CA (occurrence: CA)
  Receive Date: 20201215
  Receipt Date: 20201215
  Transmission Date: 20210114
  Serious: Yes (Other)
  Sender: FDA-Public Use
  Company Number: CA-JNJFOC-20180809078

PATIENT
  Age: 62 Year
  Sex: Female
  Weight: 69.5 kg

DRUGS (2)
  1. REMICADE [Suspect]
     Active Substance: INFLIXIMAB
     Indication: CROHN^S DISEASE
     Dosage: 5 MG/KG ONCE EVERY 6 WEEKS ON 18-SEP-2018
     Route: 042
     Dates: start: 20140303
  2. REMICADE [Suspect]
     Active Substance: INFLIXIMAB
     Route: 042

REACTIONS (15)
  - Chronic obstructive pulmonary disease [Recovering/Resolving]
  - Cough [Unknown]
  - Dental restoration failure [Recovering/Resolving]
  - Gingival disorder [Unknown]
  - Influenza [Recovered/Resolved]
  - Fall [Recovering/Resolving]
  - Wound infection [Recovering/Resolving]
  - Facial bones fracture [Recovering/Resolving]
  - Paranasal sinus hypersecretion [Recovering/Resolving]
  - Dental caries [Recovering/Resolving]
  - Intestinal obstruction [Recovering/Resolving]
  - Nerve injury [Not Recovered/Not Resolved]
  - Wrist fracture [Recovering/Resolving]
  - Vertigo [Recovering/Resolving]
  - Ear infection [Recovering/Resolving]

NARRATIVE: CASE EVENT DATE: 2018
